FAERS Safety Report 6208813-0 (Version None)
Quarter: 2009Q2

REPORT INFORMATION
  Report Type: 
  Country: None (occurrence: None)
  Receive Date: 20090529
  Receipt Date: 20090527
  Transmission Date: 20091009
  Serious: Yes (Hospitalization)
  Sender: FDA-Public Use
  Company Number: A0722934A

PATIENT
  Age: 41 Year
  Sex: Male
  Weight: 94.8 kg

DRUGS (2)
  1. TOPOTECAN [Suspect]
     Indication: COLON CANCER
     Dosage: 1.2MGM2 PER DAY
     Route: 042
     Dates: start: 20070924
  2. INVESTIGATIONAL STUDY DRUG [Suspect]
     Indication: COLON CANCER
     Dosage: 20MG PER DAY
     Route: 048
     Dates: start: 20071002

REACTIONS (3)
  - DEHYDRATION [None]
  - NAUSEA [None]
  - VOMITING [None]
